FAERS Safety Report 5554983-7 (Version None)
Quarter: 2007Q4

REPORT INFORMATION
  Report Type: 
  Country: None (occurrence: None)
  Receive Date: 20071213
  Receipt Date: 20071206
  Transmission Date: 20080405
  Serious: Yes (Other)
  Sender: FDA-Public Use
  Company Number: CA-ASTRAZENECA-2007UW27990

PATIENT
  Age: 62 Year
  Sex: Female

DRUGS (11)
  1. NEXIUM [Suspect]
     Indication: REFLUX OESOPHAGITIS
     Route: 048
     Dates: start: 20061201, end: 20071206
  2. ATACAND [Concomitant]
     Indication: HYPERTENSION
     Route: 048
  3. NASONEX [Concomitant]
     Indication: DYSPNOEA
     Dosage: 2 INHALATIONS EACH NOSTRIL
     Route: 055
  4. SYNTHROID [Concomitant]
     Indication: THYROID THERAPY
     Dosage: 1 TABLET
     Route: 048
  5. LIPITOR [Concomitant]
     Indication: HYPERCHOLESTEROLAEMIA
     Route: 048
  6. ALDACTAZIDE [Concomitant]
     Dosage: 1 TABLET
     Route: 048
  7. ACTONEL [Concomitant]
     Indication: OSTEOPOROSIS
     Dosage: 1 TABLET
     Route: 048
  8. VALTREX [Concomitant]
     Indication: HERPES SIMPLEX
     Route: 048
  9. CENTRUM FORTE [Concomitant]
     Indication: VITAMIN SUPPLEMENTATION
     Dosage: 1 TABLET
     Route: 048
  10. CARBOCAL D [Concomitant]
     Indication: VITAMIN SUPPLEMENTATION
     Dosage: 1 TABLET
     Route: 048
  11. CAL-K [Concomitant]
     Indication: VITAMIN SUPPLEMENTATION
     Dosage: 1 TABLET
     Route: 048

REACTIONS (4)
  - DYSPNOEA [None]
  - MUSCULOSKELETAL CHEST PAIN [None]
  - NASOPHARYNGITIS [None]
  - PULMONARY OEDEMA [None]
